FAERS Safety Report 5116867-8 (Version None)
Quarter: 2006Q3

REPORT INFORMATION
  Report Type: 
  Country: None (occurrence: None)
  Receive Date: 20060925
  Receipt Date: 20060919
  Transmission Date: 20061208
  Serious: Yes (Death, Hospitalization)
  Sender: FDA-Public Use
  Company Number: 062-20785-06090847

PATIENT
  Age: 77 Year
  Sex: Male

DRUGS (1)
  1. THALIDOMIDE - PHARMION (THALIDOMIDE) (50 MILLIGRAM, CAPSULES) [Suspect]
     Indication: PLASMACYTOMA
     Dosage: 350 MG, DAILY, ORAL
     Route: 048
     Dates: start: 20060912

REACTIONS (2)
  - COR PULMONALE [None]
  - PULMONARY EMBOLISM [None]
